FAERS Safety Report 4778520-X (Version None)
Quarter: 2005Q3

REPORT INFORMATION
  Report Type: 
  Country: None (occurrence: None)
  Receive Date: 20050926
  Receipt Date: 20050603
  Transmission Date: 20060218
  Serious: No
  Sender: FDA-Public Use
  Company Number: US-BRISTOL-MYERS SQUIBB COMPANY-12993267

PATIENT

DRUGS (3)
  1. REYATAZ [Suspect]
     Indication: ACQUIRED IMMUNODEFICIENCY SYNDROME
  2. ZIAGEN [Concomitant]
  3. LAMIVUDINE [Concomitant]

REACTIONS (1)
  - DRUG INEFFECTIVE [None]
